FAERS Safety Report 11165502 (Version 1)
Quarter: 2015Q2

REPORT INFORMATION
  Report Type: Spontaneous
  Country: IL (occurrence: IT)
  Receive Date: 20150604
  Receipt Date: 20150604
  Transmission Date: 20150821
  Serious: Yes (Other)
  Sender: FDA-Public Use
  Company Number: IL-BAUSCH-BL-2015-014325

PATIENT
  Age: 4 Year
  Sex: Male

DRUGS (1)
  1. CYCLOPENTOLATE [Suspect]
     Active Substance: CYCLOPENTOLATE
     Indication: OPHTHALMOLOGICAL EXAMINATION
     Route: 047
     Dates: start: 2009

REACTIONS (1)
  - Benign rolandic epilepsy [Unknown]

NARRATIVE: CASE EVENT DATE: 2009
